FAERS Safety Report 26218206 (Version 1)
Quarter: 2025Q4

REPORT INFORMATION
  Report Type: Report from Study
  Country: US (occurrence: US)
  Receive Date: 20251231
  Receipt Date: 20251231
  Transmission Date: 20260118
  Serious: Yes (Other)
  Sender: TEVA
  Company Number: US-TEVA-VS-3407804

PATIENT
  Age: 55 Year
  Sex: Female

DRUGS (5)
  1. TREPROSTINIL [Suspect]
     Active Substance: TREPROSTINIL
     Indication: Pulmonary arterial hypertension
     Dosage: MDV, DOSE: 35NG/KM/MIN, FREQUENCY: CONTINUOUS
     Route: 042
     Dates: start: 202501
  2. WINREVAIR [Concomitant]
     Active Substance: SOTATERCEPT-CSRK
     Indication: Product used for unknown indication
     Dosage: SDV
  3. ADEMPAS [Concomitant]
     Active Substance: RIOCIGUAT
     Indication: Product used for unknown indication
  4. AMBRISENTAN [Concomitant]
     Active Substance: AMBRISENTAN
     Indication: Product used for unknown indication
  5. FLOLAN [Concomitant]
     Active Substance: EPOPROSTENOL SODIUM
     Indication: Product used for unknown indication
     Dosage: STERILE DILUENT (50ML)

REACTIONS (4)
  - Colitis [Unknown]
  - Fatigue [Recovering/Resolving]
  - Dyspnoea [Unknown]
  - Gastrointestinal angiodysplasia [Unknown]

NARRATIVE: CASE EVENT DATE: 20250101
